FAERS Safety Report 17039597 (Version 1)
Quarter: 2019Q4

REPORT INFORMATION
  Report Type: Spontaneous
  Country: CN (occurrence: CN)
  Receive Date: 20191115
  Receipt Date: 20191115
  Transmission Date: 20200122
  Serious: Yes (Hospitalization, Other)
  Sender: FDA-Public Use
  Company Number: CN-BAXTER-2019BAX022728

PATIENT
  Age: 47 Year
  Sex: Female
  Weight: 56 kg

DRUGS (6)
  1. ENDOXAN [Suspect]
     Active Substance: CYCLOPHOSPHAMIDE
     Dosage: DOSE RE-INTRODUCTION
     Route: 041
  2. ENDOXAN [Suspect]
     Active Substance: CYCLOPHOSPHAMIDE
     Indication: BREAST CANCER
     Dosage: FIRST AND SECOND CYCLE
     Route: 041
  3. TAXOTERE [Suspect]
     Active Substance: DOCETAXEL
     Dosage: THIRD CYCLE
     Route: 041
     Dates: start: 20190929, end: 20190929
  4. TAXOTERE [Suspect]
     Active Substance: DOCETAXEL
     Indication: BREAST CANCER
     Dosage: FIRST AND SECOND CYCLE
     Route: 041
  5. ENDOXAN [Suspect]
     Active Substance: CYCLOPHOSPHAMIDE
     Dosage: THIRD CYCLE
     Route: 041
     Dates: start: 20190929, end: 20190929
  6. TAXOTERE [Suspect]
     Active Substance: DOCETAXEL
     Dosage: DOSE RE-INTRODUCED
     Route: 041

REACTIONS (7)
  - Swelling of eyelid [Recovering/Resolving]
  - Abdominal pain [Recovering/Resolving]
  - Pruritus [Recovered/Resolved]
  - Diarrhoea [Recovered/Resolved]
  - Erythema [Recovering/Resolving]
  - Rash [Recovered/Resolved]
  - Skin swelling [Recovering/Resolving]

NARRATIVE: CASE EVENT DATE: 20191006
